FAERS Safety Report 19488039 (Version 5)
Quarter: 2022Q2

REPORT INFORMATION
  Report Type: Spontaneous
  Country: AU (occurrence: AU)
  Receive Date: 20210702
  Receipt Date: 20220627
  Transmission Date: 20220720
  Serious: Yes (Life-Threatening, Hospitalization, Other)
  Sender: FDA-Public Use
  Company Number: AU-GSKCCFAPAC-CASE-01246185_AE-46428

PATIENT

DRUGS (1)
  1. VENTOLIN [Suspect]
     Active Substance: ALBUTEROL SULFATE
     Indication: Product used for unknown indication
     Dosage: UNK
     Route: 055

REACTIONS (9)
  - Near death experience [Unknown]
  - Hospitalisation [Unknown]
  - Dyspnoea [Unknown]
  - Illness [Unknown]
  - Chest discomfort [Unknown]
  - Device delivery system issue [Unknown]
  - Product dose omission issue [Unknown]
  - Wrong technique in product usage process [Unknown]
  - Product complaint [Unknown]
